FAERS Safety Report 6730063-X (Version None)
Quarter: 2010Q2

REPORT INFORMATION
  Report Type: 
  Country: None (occurrence: None)
  Receive Date: 20100518
  Receipt Date: 20100509
  Transmission Date: 20101027
  Serious: Yes (Other)
  Sender: FDA-Public Use
  Company Number: FR-PFIZER INC-2010058250

PATIENT
  Age: 61 Year
  Sex: Male

DRUGS (7)
  1. ZOXAN [Suspect]
     Indication: PROSTATIC ADENOMA
     Dosage: 4 MG, 1X/DAY
     Route: 048
     Dates: start: 20100428, end: 20100508
  2. TRAMADOL [Concomitant]
     Indication: PAIN
     Dosage: UNK
  3. PIROXICAM [Concomitant]
     Indication: PAIN
     Dosage: UNK
  4. LOXEN [Concomitant]
     Indication: HYPERTENSION
     Dosage: 2 DF, DAILY
  5. RILMENIDINE [Concomitant]
     Indication: HYPERTENSION
     Dosage: 1 DF, DAILY
  6. COLCHIMAX (FRANCE) [Concomitant]
     Indication: GOUT
     Dosage: 1 TO 2 DF DAILY
  7. PROSCAR [Concomitant]
     Indication: PROSTATIC ADENOMA
     Dosage: 1 DF, DAILY

REACTIONS (7)
  - ALANINE AMINOTRANSFERASE INCREASED [None]
  - ASPARTATE AMINOTRANSFERASE INCREASED [None]
  - BONE DISORDER [None]
  - GAMMA-GLUTAMYLTRANSFERASE INCREASED [None]
  - OEDEMA PERIPHERAL [None]
  - PAIN [None]
  - TENDON CALCIFICATION [None]
